FAERS Safety Report 24271147 (Version 3)
Quarter: 2024Q3

REPORT INFORMATION
  Report Type: Spontaneous
  Country: JP (occurrence: JP)
  Receive Date: 20240831
  Receipt Date: 20240923
  Transmission Date: 20241017
  Serious: Yes (Death, Other)
  Sender: UNITED THERAPEUTICS
  Company Number: JP-UNITED THERAPEUTICS-UNT-2024-004282

PATIENT
  Age: 64 Year
  Sex: Male

DRUGS (4)
  1. TYVASO [Suspect]
     Active Substance: TREPROSTINIL
     Indication: Pulmonary arterial hypertension
     Dosage: 18 ?G, QID
     Dates: start: 20240205, end: 20240211
  2. TYVASO [Suspect]
     Active Substance: TREPROSTINIL
     Indication: Combined pulmonary fibrosis and emphysema
     Dosage: 36 ?G, QID
     Dates: start: 20240212, end: 20240218
  3. TYVASO [Suspect]
     Active Substance: TREPROSTINIL
     Indication: Chronic obstructive pulmonary disease
     Dosage: 54 ?G, QID
     Dates: start: 20240219, end: 20240826
  4. ADCIRCA [Concomitant]
     Active Substance: TADALAFIL
     Indication: Pulmonary arterial hypertension
     Dosage: 40 MG, QD
     Dates: start: 20230714, end: 20240826

REACTIONS (4)
  - Pneumothorax [Fatal]
  - Combined pulmonary fibrosis and emphysema [Fatal]
  - Condition aggravated [Fatal]
  - Off label use [Unknown]

NARRATIVE: CASE EVENT DATE: 20240826
